FAERS Safety Report 4943036-4 (Version None)
Quarter: 2006Q1

REPORT INFORMATION
  Report Type: 
  Country: None (occurrence: None)
  Receive Date: 20060314
  Receipt Date: 20060307
  Transmission Date: 20060701
  Serious: Yes (Other)
  Sender: FDA-Public Use
  Company Number: FR-GLAXOSMITHKLINE-B0414860A

PATIENT
  Age: 6 Year
  Sex: Male

DRUGS (1)
  1. BECOTIDE [Suspect]
     Indication: LARYNGITIS VIRAL
     Dosage: 2PUFF TWICE PER DAY
     Route: 055
     Dates: start: 20060304, end: 20060305

REACTIONS (3)
  - DRUG ADMINISTRATION ERROR [None]
  - DYSPNOEA [None]
  - LUNG DISORDER [None]
